FAERS Safety Report 17551336 (Version 1)
Quarter: 2020Q1

REPORT INFORMATION
  Report Type: Spontaneous
  Country: AT (occurrence: AT)
  Receive Date: 20200317
  Receipt Date: 20200317
  Transmission Date: 20200409
  Serious: Yes (Hospitalization, Other)
  Sender: FDA-Public Use
  Company Number: AT-ACCORD-173682

PATIENT
  Age: 59 Year
  Sex: Female

DRUGS (4)
  1. ARIPIPRAZOLE. [Suspect]
     Active Substance: ARIPIPRAZOLE
     Indication: DEPRESSION
  2. CANDESARTAN. [Interacting]
     Active Substance: CANDESARTAN
     Indication: HYPERTENSION
     Dosage: (32/12MG QD)
  3. BISOPROLOL [Interacting]
     Active Substance: BISOPROLOL
     Indication: HYPERTENSION
     Dosage: (1.25 MG QD)
  4. DULOXETINE/DULOXETINE HYDROCHLORIDE [Interacting]
     Active Substance: DULOXETINE HYDROCHLORIDE
     Indication: DEPRESSION
     Dosage: (30MG/D) SINCE 6 YEARS

REACTIONS (6)
  - Drug metabolising enzyme decreased [Recovered/Resolved]
  - Musculoskeletal stiffness [Recovered/Resolved]
  - Drug interaction [Unknown]
  - Myalgia [Recovered/Resolved]
  - Asthenia [Recovered/Resolved]
  - Drug level increased [Recovered/Resolved]
